FAERS Safety Report 6893058-1 (Version None)
Quarter: 2010Q3

REPORT INFORMATION
  Report Type: 
  Country: None (occurrence: None)
  Receive Date: 20100731
  Receipt Date: 20090302
  Transmission Date: 20110219
  Serious: Yes (Other)
  Sender: FDA-Public Use
  Company Number: US-PFIZER INC-2004089813

PATIENT
  Sex: Male
  Weight: 86.168 kg

DRUGS (6)
  1. NEURONTIN [Suspect]
     Indication: BIPOLAR DISORDER
     Route: 048
     Dates: start: 20010901, end: 20041103
  2. NEURONTIN [Suspect]
     Indication: ANXIETY
  3. NEURONTIN [Suspect]
     Indication: NERVE INJURY
  4. CLONAZEPAM [Concomitant]
     Route: 048
  5. CELEXA [Concomitant]
     Indication: DEPRESSION
     Dosage: 20 MG, 1X/DAY
  6. BACLOFEN [Concomitant]
     Dosage: 20 MG, 2X/DAY

REACTIONS (3)
  - MALAISE [None]
  - SUICIDAL IDEATION [None]
  - TREMOR [None]
